FAERS Safety Report 9546495 (Version 2)
Quarter: 2014Q3

REPORT INFORMATION
  Report Type: Spontaneous
  Country: CA (occurrence: CA)
  Receive Date: 20130923
  Receipt Date: 20140717
  Transmission Date: 20150326
  Serious: Yes (Hospitalization, Disabling, Other)
  Sender: FDA-Public Use
  Company Number: CA-009507513-1309CAN010612

PATIENT
  Age: 63 Year
  Sex: Female
  Weight: 57.14 kg

DRUGS (7)
  1. FOSAMAX [Suspect]
     Active Substance: ALENDRONATE SODIUM
     Indication: OSTEOPOROSIS
     Dosage: 70 MG, QW
     Route: 048
     Dates: end: 20111115
  2. INDERAL LA [Concomitant]
     Active Substance: PROPRANOLOL HYDROCHLORIDE
     Indication: HEADACHE
     Dosage: 80 MG, QD
     Route: 065
  3. FIORINAL (ACETAMINOPHEN (+) ASPIRIN (+) CAFFEINE) [Concomitant]
     Indication: HEADACHE
     Dosage: 2 DF, PRN
     Route: 065
  4. TRUSOPT [Concomitant]
     Active Substance: DORZOLAMIDE HYDROCHLORIDE
     Dosage: 2 %, BID
     Route: 047
  5. IMITREX [Concomitant]
     Active Substance: SUMATRIPTAN\SUMATRIPTAN SUCCINATE
     Indication: MIGRAINE
     Dosage: 6 MG, PRN
     Route: 058
  6. CRESTOR [Concomitant]
     Active Substance: ROSUVASTATIN CALCIUM
     Dosage: 20 MG, QD
     Route: 065
  7. NEXIUM [Concomitant]
     Active Substance: ESOMEPRAZOLE MAGNESIUM
     Indication: GASTROOESOPHAGEAL REFLUX DISEASE
     Dosage: 40 MG, QD
     Route: 065

REACTIONS (3)
  - Arthralgia [Not Recovered/Not Resolved]
  - Femur fracture [Not Recovered/Not Resolved]
  - Gait disturbance [Not Recovered/Not Resolved]
